FAERS Safety Report 5450247-0 (Version None)
Quarter: 2007Q3

REPORT INFORMATION
  Report Type: 
  Country: None (occurrence: None)
  Receive Date: 20070912
  Receipt Date: 20070831
  Transmission Date: 20080115
  Serious: Yes (Hospitalization)
  Sender: FDA-Public Use
  Company Number: JP-PFIZER INC-2007066904

PATIENT
  Age: 39 Year
  Sex: Male

DRUGS (4)
  1. SULPERAZON [Suspect]
     Indication: CHOLANGITIS
     Dosage: DAILY DOSE:4GRAM-FREQ:FREQUENCY: BID
     Route: 042
     Dates: start: 20070726, end: 20070803
  2. REMINARON [Suspect]
     Indication: PANCREATITIS
     Dosage: DAILY DOSE:1000MG
     Route: 042
     Dates: start: 20070725, end: 20070803
  3. PENTCILLIN [Suspect]
     Indication: CHOLANGITIS
     Dosage: DAILY DOSE:4GRAM
     Route: 042
     Dates: start: 20070723, end: 20070726
  4. ROXATIDINE ACETATE HCL [Suspect]
     Indication: GASTRIC ULCER
     Dosage: DAILY DOSE:150MG
     Route: 042
     Dates: start: 20070723, end: 20070803

REACTIONS (5)
  - ALANINE AMINOTRANSFERASE INCREASED [None]
  - ASPARTATE AMINOTRANSFERASE INCREASED [None]
  - BLOOD BILIRUBIN INCREASED [None]
  - HEPATIC FUNCTION ABNORMAL [None]
  - RENAL DISORDER [None]
